FAERS Safety Report 11310021 (Version 2)
Quarter: 2015Q3

REPORT INFORMATION
  Report Type: Spontaneous
  Country: US (occurrence: US)
  Receive Date: 20150724
  Receipt Date: 20150821
  Transmission Date: 20151125
  Serious: Yes (Other)
  Sender: FDA-Public Use
  Company Number: US-BRACCO-012375

PATIENT
  Age: 69 Year
  Sex: Female
  Weight: 104 kg

DRUGS (11)
  1. LISINOPRIL. [Concomitant]
     Active Substance: LISINOPRIL
  2. ESTROGEN [Concomitant]
     Active Substance: ESTRONE\SUS SCROFA OVARY
  3. TYLENOL WITH CODEINE [Concomitant]
     Active Substance: ACETAMINOPHEN\CODEINE PHOSPHATE
  4. AMLODIPINE [Concomitant]
     Active Substance: AMLODIPINE BESYLATE
  5. PLAVIX [Concomitant]
     Active Substance: CLOPIDOGREL BISULFATE
  6. PROZAC [Concomitant]
     Active Substance: FLUOXETINE HYDROCHLORIDE
  7. STERILE WATER [Concomitant]
     Active Substance: WATER
  8. KINEVAC [Suspect]
     Active Substance: SINCALIDE
     Indication: HEPATOBILIARY SCAN
     Dosage: 2.1 MCG
     Route: 042
     Dates: start: 20150630, end: 20150630
  9. KETOCONAZOLE. [Concomitant]
     Active Substance: KETOCONAZOLE
  10. HCTZ [Concomitant]
     Active Substance: HYDROCHLOROTHIAZIDE
  11. METOPROLOL [Concomitant]
     Active Substance: METOPROLOL

REACTIONS (4)
  - Pyrexia [Unknown]
  - Chills [Unknown]
  - Nervousness [Unknown]
  - Product quality issue [Unknown]

NARRATIVE: CASE EVENT DATE: 20150630
